FAERS Safety Report 5493756-0 (Version None)
Quarter: 2007Q4

REPORT INFORMATION
  Report Type: 
  Country: None (occurrence: None)
  Receive Date: 20071023
  Receipt Date: 20071016
  Transmission Date: 20080405
  Serious: Yes (Hospitalization)
  Sender: FDA-Public Use
  Company Number: FR-ROXANE LABORATORIES, INC-2007-BP-22767RO

PATIENT
  Age: 25 Year
  Sex: Female

DRUGS (9)
  1. CYCLOPHOSPHAMIDE [Suspect]
     Indication: GLOMERULONEPHRITIS MEMBRANOUS
  2. PREDNISONE [Suspect]
     Indication: GLOMERULONEPHRITIS MEMBRANOUS
  3. ANGIOTENSIN-CONVERTING ENZYME INHIBITOR [Concomitant]
  4. ANTICOAGULANT [Concomitant]
     Route: 048
  5. STATIN [Concomitant]
  6. RECOMBINANT ERYTHROPOIETIN [Concomitant]
  7. ERYTHROPOIESIS-STIMULATING AGENT [Concomitant]
  8. RECOMBINANT GRANULOCYTE COLONY-STIMULATING FACTOR [Concomitant]
  9. ANTIBIOTHERAPY [Concomitant]

REACTIONS (10)
  - ALOPECIA [None]
  - ANAEMIA [None]
  - ASTHENIA [None]
  - DIARRHOEA [None]
  - DYSPHAGIA [None]
  - NEUTROPENIA [None]
  - PANCYTOPENIA [None]
  - PHARYNGITIS [None]
  - PYREXIA [None]
  - STAPHYLOCOCCAL INFECTION [None]
